FAERS Safety Report 10079615 (Version 1)
Quarter: 2014Q2

REPORT INFORMATION
  Report Type: Spontaneous
  Country: US (occurrence: US)
  Receive Date: 20140415
  Receipt Date: 20140415
  Transmission Date: 20141212
  Serious: No
  Sender: FDA-Public Use
  Company Number: US-BAUSCH-BL-2014-001631

PATIENT
  Age: 74 Year
  Sex: Female

DRUGS (1)
  1. LOTEMAX (LOTEPREDNOL ETABONATE OPHTHALMIC GEL 0.5%) [Suspect]
     Indication: BLEPHARITIS
     Dosage: 4 DROPS IN EACH EYE
     Route: 047
     Dates: start: 20140103, end: 2014

REACTIONS (1)
  - Herpes zoster [Recovered/Resolved]
